FAERS Safety Report 7286256-9 (Version None)
Quarter: 2011Q1

REPORT INFORMATION
  Report Type: 
  Country: None (occurrence: None)
  Receive Date: 20110210
  Receipt Date: 20110201
  Transmission Date: 20110831
  Serious: Yes (Other)
  Sender: FDA-Public Use
  Company Number: PHHY2011CA07712

PATIENT
  Age: 37 Year
  Sex: Female

DRUGS (1)
  1. FEMARA [Suspect]
     Indication: OVULATION INDUCTION
     Dosage: UNK
     Route: 048

REACTIONS (4)
  - DIZZINESS [None]
  - CHEST DISCOMFORT [None]
  - FATIGUE [None]
  - BLOOD PRESSURE DECREASED [None]
